FAERS Safety Report 24229344 (Version 1)
Quarter: 2024Q3

REPORT INFORMATION
  Report Type: Spontaneous
  Country: GR (occurrence: GR)
  Receive Date: 20240820
  Receipt Date: 20240820
  Transmission Date: 20241017
  Serious: Yes (Death, Life-Threatening, Hospitalization)
  Sender: ACCORD
  Company Number: GR-MLMSERVICE-20240801-PI150213-00059-1

PATIENT
  Sex: Male

DRUGS (4)
  1. METHOTREXATE [Suspect]
     Active Substance: METHOTREXATE
     Indication: Arthritis reactive
  2. AZATHIOPRINE [Suspect]
     Active Substance: AZATHIOPRINE
     Indication: Arthritis reactive
  3. INFLIXIMAB [Suspect]
     Active Substance: INFLIXIMAB
     Indication: Arthritis reactive
  4. METHYLPREDNISOLONE [Suspect]
     Active Substance: METHYLPREDNISOLONE
     Indication: Arthritis reactive

REACTIONS (12)
  - Condition aggravated [Fatal]
  - Intestinal ulcer [Fatal]
  - Histoplasmosis disseminated [Fatal]
  - Upper respiratory tract infection [Fatal]
  - Leukoencephalopathy [Fatal]
  - Cutaneous vasculitis [Fatal]
  - Tubulointerstitial nephritis [Fatal]
  - Polyarthritis [Fatal]
  - Erythema nodosum [Fatal]
  - Cerebral infarction [Fatal]
  - Cerebral ischaemia [Fatal]
  - Off label use [Unknown]
